FAERS Safety Report 6285059-1 (Version None)
Quarter: 2009Q3

REPORT INFORMATION
  Report Type: 
  Country: None (occurrence: None)
  Receive Date: 20090727
  Receipt Date: 20090722
  Transmission Date: 20100115
  Serious: Yes (Other)
  Sender: FDA-Public Use
  Company Number: US-BRISTOL-MYERS SQUIBB COMPANY-14712293

PATIENT
  Age: 65 Year
  Sex: Female

DRUGS (3)
  1. ERBITUX [Suspect]
     Indication: COLORECTAL CANCER
  2. FLUOROURACIL [Suspect]
  3. IRINOTECAN HCL [Suspect]

REACTIONS (1)
  - BURNS THIRD DEGREE [None]
